FAERS Safety Report 9651403 (Version 1)
Quarter: 2013Q4

REPORT INFORMATION
  Report Type: Spontaneous
  Country: US (occurrence: US)
  Receive Date: 20131029
  Receipt Date: 20131029
  Transmission Date: 20140711
  Serious: No
  Sender: FDA-Public Use
  Company Number: US-BAYER-2013-128269

PATIENT
  Age: 41 Year
  Sex: Female

DRUGS (1)
  1. GADAVIST [Suspect]
     Indication: SACROILIITIS
     Dosage: INJECTION
     Dates: start: 20131001, end: 20131001

REACTIONS (3)
  - Dyspnoea [Recovered/Resolved]
  - Throat irritation [Recovered/Resolved]
  - Off label use [None]
